FAERS Safety Report 20350775 (Version 1)
Quarter: 2022Q1

REPORT INFORMATION
  Report Type: Spontaneous
  Country: US (occurrence: None)
  Receive Date: 20220119
  Receipt Date: 20220119
  Transmission Date: 20220423
  Serious: Yes (Hospitalization)
  Sender: FDA-Public Use
  Company Number: None

PATIENT
  Sex: Female

DRUGS (1)
  1. RETACRIT [Suspect]
     Active Substance: EPOETIN ALFA-EPBX
     Indication: Iron deficiency anaemia
     Dosage: 40000 ONCE A WEEK SUBCUTANEOUSLY? ?
     Route: 058
     Dates: start: 20211223

REACTIONS (1)
  - Transfusion [None]
